FAERS Safety Report 9087458 (Version 1)
Quarter: 2013Q1

REPORT INFORMATION
  Report Type: Report from Study
  Country: US (occurrence: US)
  Receive Date: 20130201
  Receipt Date: 20130201
  Transmission Date: 20140127
  Serious: No
  Sender: FDA-Public Use
  Company Number: US-ABBOTT-12P-163-1028099-00

PATIENT
  Age: 57 Year
  Sex: Male
  Weight: 136.2 kg

DRUGS (14)
  1. HUMIRA [Suspect]
     Indication: RHEUMATOID ARTHRITIS
     Dates: start: 20121106, end: 20121106
  2. HUMIRA [Suspect]
     Indication: PSORIASIS
  3. ALBUTEROL [Concomitant]
     Indication: ASTHMA
     Dosage: INHALER
  4. ALLOPURINOL [Concomitant]
     Indication: GOUT
  5. ASPIRIN [Concomitant]
     Indication: CARDIAC DISORDER
  6. CARVEDILOL [Concomitant]
     Indication: HYPERTENSION
  7. CLONOPIN [Concomitant]
     Indication: ANXIETY
  8. LISINOPRIL [Concomitant]
     Indication: HYPERTENSION
  9. LOVASA [Concomitant]
     Indication: BLOOD CHOLESTEROL INCREASED
  10. MELOXICAM [Concomitant]
     Indication: RHEUMATOID ARTHRITIS
  11. MULTIVITAMIN [Concomitant]
     Indication: MEDICAL DIET
  12. NASONEX [Concomitant]
     Indication: HYPERSENSITIVITY
  13. QVAR [Concomitant]
     Indication: ASTHMA
     Dosage: INHALER
  14. SINGULAIR [Concomitant]
     Indication: ASTHMA

REACTIONS (3)
  - Sinusitis [Recovered/Resolved]
  - Ingrowing nail [Recovering/Resolving]
  - Nail avulsion [Recovering/Resolving]
